FAERS Safety Report 12041341 (Version 1)
Quarter: 2016Q1

REPORT INFORMATION
  Report Type: Spontaneous
  Country: FR (occurrence: FR)
  Receive Date: 20160208
  Receipt Date: 20160208
  Transmission Date: 20160526
  Serious: Yes (Other)
  Sender: FDA-Public Use
  Company Number: FR-JNJFOC-20160204679

PATIENT
  Sex: Female

DRUGS (1)
  1. REMICADE [Suspect]
     Active Substance: INFLIXIMAB
     Indication: UVEITIS
     Dosage: 15TH INFLIXIMAB INFUSION
     Route: 042

REACTIONS (3)
  - Product use issue [Unknown]
  - Cervix carcinoma stage 0 [Unknown]
  - Off label use [Unknown]
